FAERS Safety Report 16562317 (Version 1)
Quarter: 2019Q3

REPORT INFORMATION
  Report Type: Spontaneous
  Country: US (occurrence: US)
  Receive Date: 20190711
  Receipt Date: 20190711
  Transmission Date: 20191004
  Serious: Yes (Life-Threatening, Hospitalization)
  Sender: FDA-Public Use
  Company Number: US-TEVA-2019-US-1074065

PATIENT
  Age: 22 Year
  Sex: Male

DRUGS (5)
  1. HYDROXYZINE [Suspect]
     Active Substance: HYDROXYZINE HYDROCHLORIDE
     Indication: SUPPLEMENTATION THERAPY
     Dosage: DOUBLE DOSE
     Route: 065
  2. CREATINE-MONOHYDRATE [Suspect]
     Active Substance: CREATINE MONOHYDRATE
     Indication: SUPPLEMENTATION THERAPY
     Dosage: DOUBLE DOSE
     Route: 065
  3. TAURINE [Suspect]
     Active Substance: TAURINE
     Indication: SUPPLEMENTATION THERAPY
     Dosage: DOUBLE DOSE
     Route: 065
  4. LEVOTHYROXINE. [Suspect]
     Active Substance: LEVOTHYROXINE
     Indication: SUPPLEMENTATION THERAPY
     Dosage: DOUBLE DOSE
     Route: 065
  5. DINITROPHENOL [Suspect]
     Active Substance: 2,4-DINITROPHENOL
     Indication: SUPPLEMENTATION THERAPY
     Dosage: DOUBLE DOSE
     Route: 065

REACTIONS (6)
  - Hyperhidrosis [Unknown]
  - Hyperthermia [Recovered/Resolved]
  - Intentional product misuse [Unknown]
  - Tremor [Unknown]
  - Confusional state [Unknown]
  - Intentional overdose [Unknown]
